FAERS Safety Report 9719756 (Version 1)
Quarter: 2013Q4

REPORT INFORMATION
  Report Type: Report from Study
  Country: US (occurrence: US)
  Receive Date: 20131128
  Receipt Date: 20131128
  Transmission Date: 20140711
  Serious: Yes (Other)
  Sender: FDA-Public Use
  Company Number: US-ROCHE-1309780

PATIENT
  Sex: 0

DRUGS (1)
  1. DIAZEPAM [Suspect]
     Indication: CONVULSION
     Dosage: 5 MG/ML
     Route: 030
     Dates: start: 200601, end: 201112

REACTIONS (1)
  - Gait disturbance [Unknown]
